FAERS Safety Report 11822481 (Version 1)
Quarter: 2015Q4

REPORT INFORMATION
  Report Type: Spontaneous
  Country: US (occurrence: US)
  Receive Date: 20151210
  Receipt Date: 20151210
  Transmission Date: 20160305
  Serious: No
  Sender: FDA-Public Use
  Company Number: US-JNJFOC-20150417935

PATIENT
  Sex: Male

DRUGS (15)
  1. CYANOCOBALAMIN. [Concomitant]
     Active Substance: CYANOCOBALAMIN
  2. FISH OIL [Concomitant]
     Active Substance: FISH OIL
  3. FLONASE [Concomitant]
     Active Substance: FLUTICASONE PROPIONATE
  4. IMBRUVICA [Suspect]
     Active Substance: IBRUTINIB
     Indication: CHRONIC LYMPHOCYTIC LEUKAEMIA
     Route: 048
     Dates: start: 20140821
  5. GLUCOSAMINE [Concomitant]
     Active Substance: GLUCOSAMINE
  6. ATACAND [Concomitant]
     Active Substance: CANDESARTAN CILEXETIL
  7. VITAMIN D [Concomitant]
     Active Substance: CHOLECALCIFEROL
  8. CRESTOR [Concomitant]
     Active Substance: ROSUVASTATIN CALCIUM
  9. PROAIR HFA [Concomitant]
     Active Substance: ALBUTEROL SULFATE
  10. SINGULAIR [Concomitant]
     Active Substance: MONTELUKAST SODIUM
  11. ZOFRAN [Concomitant]
     Active Substance: ONDANSETRON HYDROCHLORIDE
  12. ACETAMINOPHEN. [Concomitant]
     Active Substance: ACETAMINOPHEN
  13. LIDOCAINE HYDROCHLORIDE. [Concomitant]
     Active Substance: LIDOCAINE HYDROCHLORIDE
  14. LORATADINE. [Concomitant]
     Active Substance: LORATADINE
  15. NOVOLIN N [Concomitant]
     Active Substance: INSULIN HUMAN

REACTIONS (3)
  - Fatigue [Unknown]
  - Diarrhoea [Recovering/Resolving]
  - Blood count abnormal [Unknown]
